FAERS Safety Report 5008342-6 (Version None)
Quarter: 2006Q2

REPORT INFORMATION
  Report Type: 
  Country: None (occurrence: None)
  Receive Date: 20060523
  Receipt Date: 20060515
  Transmission Date: 20061013
  Serious: Yes (Hospitalization)
  Sender: FDA-Public Use
  Company Number: IT-AVENTIS-200615218GDDC

PATIENT
  Age: 34 Year
  Sex: Male

DRUGS (3)
  1. ZARIVIZ [Suspect]
     Indication: URINARY TRACT INFECTION
     Route: 042
  2. CONTRAMAL [Concomitant]
  3. ACETAMINOPHEN [Concomitant]

REACTIONS (1)
  - DERMATITIS [None]
